FAERS Safety Report 13061923 (Version 1)
Quarter: 2016Q4

REPORT INFORMATION
  Report Type: Spontaneous
  Country: US (occurrence: US)
  Receive Date: 20161226
  Receipt Date: 20161226
  Transmission Date: 20170207
  Serious: Yes (Death)
  Sender: FDA-Public Use
  Company Number: US-LUPIN PHARMACEUTICALS INC.-2016-05688

PATIENT
  Age: 25 Year
  Sex: Female
  Weight: 56.75 kg

DRUGS (3)
  1. OXYCODONE [Suspect]
     Active Substance: OXYCODONE
     Indication: PRODUCT USED FOR UNKNOWN INDICATION
     Route: 065
  2. TRAMADOL. [Suspect]
     Active Substance: TRAMADOL
     Indication: PRODUCT USED FOR UNKNOWN INDICATION
     Route: 065
  3. LUNESTA [Suspect]
     Active Substance: ESZOPICLONE
     Indication: SUICIDE ATTEMPT
     Dosage: OVERDOSE
     Route: 048
     Dates: start: 20160507, end: 20160507

REACTIONS (2)
  - Intentional overdose [Fatal]
  - Completed suicide [Fatal]

NARRATIVE: CASE EVENT DATE: 20160507
